FAERS Safety Report 16443884 (Version 1)
Quarter: 2019Q2

REPORT INFORMATION
  Report Type: Spontaneous
  Country: CA (occurrence: CA)
  Receive Date: 20190618
  Receipt Date: 20190618
  Transmission Date: 20190711
  Serious: Yes (Death, Other)
  Sender: FDA-Public Use
  Company Number: CA-AUROBINDO-AUR-APL-2019-033344

PATIENT

DRUGS (3)
  1. TOPIRAMATE. [Suspect]
     Active Substance: TOPIRAMATE
     Indication: SCHIZOPHRENIA
     Dosage: 50 MILLIGRAM, ONCE A DAY
     Route: 065
  2. LAMOTRIGINE TABLET [Suspect]
     Active Substance: LAMOTRIGINE
     Indication: SCHIZOPHRENIA
     Dosage: 50 MILLIGRAM, ONCE A DAY
     Route: 065
  3. CLOZAPINE. [Suspect]
     Active Substance: CLOZAPINE
     Indication: SCHIZOPHRENIA
     Dosage: 525 MILLIGRAM, ONCE A DAY
     Route: 048

REACTIONS (7)
  - Abdominal distension [Fatal]
  - Electrocardiogram QT prolonged [Fatal]
  - Gastrointestinal haemorrhage [Fatal]
  - Hypotension [Fatal]
  - Acute respiratory failure [Fatal]
  - Nausea [Fatal]
  - Vomiting [Fatal]
